FAERS Safety Report 20419745 (Version 1)
Quarter: 2022Q1

REPORT INFORMATION
  Report Type: Report from Study
  Country: GB (occurrence: GB)
  Receive Date: 20220203
  Receipt Date: 20220203
  Transmission Date: 20220423
  Serious: Yes (Hospitalization, Other)
  Sender: FDA-Public Use
  Company Number: GB-PFIZER INC-202200130694

PATIENT
  Age: 40 Year
  Sex: Female
  Weight: 68 kg

DRUGS (2)
  1. ETANERCEPT [Suspect]
     Active Substance: ETANERCEPT
     Indication: Rheumatoid arthritis
     Dosage: 25 MG
     Route: 058
     Dates: start: 20040915, end: 20110715
  2. METHOTREXATE [Concomitant]
     Active Substance: METHOTREXATE
     Dosage: UNK
     Dates: start: 20170623

REACTIONS (1)
  - Stillbirth [Unknown]

NARRATIVE: CASE EVENT DATE: 20150916
